FAERS Safety Report 17711848 (Version 1)
Quarter: 2020Q2

REPORT INFORMATION
  Report Type: Spontaneous
  Country: US (occurrence: US)
  Receive Date: 20200426
  Receipt Date: 20200426
  Transmission Date: 20200714
  Serious: Yes (Disabling)
  Sender: FDA-Public Use
  Company Number: None

PATIENT
  Age: 60 Year
  Sex: Female
  Weight: 63.45 kg

DRUGS (9)
  1. ZOLEDRONIC ACID [Suspect]
     Active Substance: ZOLEDRONIC ACID
     Indication: OSTEOPENIA
     Dosage: ?          QUANTITY:1 INFUSION;OTHER FREQUENCY:ANNUALLY;?
     Route: 042
     Dates: start: 20200327, end: 20200327
  2. CALCIUM 2GM [Concomitant]
  3. STADOL [Concomitant]
     Active Substance: BUTORPHANOL TARTRATE
  4. SYNTHROID [Concomitant]
     Active Substance: LEVOTHYROXINE SODIUM
  5. LIOTHYRONIN [Concomitant]
     Active Substance: LIOTHYRONINE SODIUM
  6. IRBESARTAN. [Concomitant]
     Active Substance: IRBESARTAN
  7. CODEINE [Concomitant]
     Active Substance: CODEINE
  8. LEVAQUIN [Concomitant]
     Active Substance: LEVOFLOXACIN
  9. HYDROCODONE [Concomitant]
     Active Substance: HYDROCODONE

REACTIONS (14)
  - Lethargy [None]
  - Dyspnoea [None]
  - Arthralgia [None]
  - Body temperature increased [None]
  - Hypersomnia [None]
  - Fatigue [None]
  - Myalgia [None]
  - Headache [None]
  - Musculoskeletal pain [None]
  - Pyrexia [None]
  - Decreased appetite [None]
  - Influenza like illness [None]
  - Chest pain [None]
  - Cough [None]

NARRATIVE: CASE EVENT DATE: 20200328
